FAERS Safety Report 5332386-8 (Version None)
Quarter: 2007Q2

REPORT INFORMATION
  Report Type: 
  Country: None (occurrence: None)
  Receive Date: 20070523
  Receipt Date: 20070516
  Transmission Date: 20071010
  Serious: Yes (Disabling)
  Sender: FDA-Public Use
  Company Number: B0471962A

PATIENT
  Age: 66 Year
  Sex: Female

DRUGS (1)
  1. CARVEDILOL [Suspect]
     Indication: DRUG USE FOR UNKNOWN INDICATION
     Dosage: 6.3MG TWICE PER DAY
     Route: 048
     Dates: start: 20061121, end: 20070205

REACTIONS (1)
  - ABDOMINAL PAIN [None]
